FAERS Safety Report 10221804 (Version 1)
Quarter: 2014Q2

REPORT INFORMATION
  Report Type: Spontaneous
  Country: BR (occurrence: BR)
  Receive Date: 20140606
  Receipt Date: 20140606
  Transmission Date: 20141212
  Serious: No
  Sender: FDA-Public Use
  Company Number: BR-BIOMARINAP-BR-2013-101121

PATIENT
  Age: 6 Year
  Sex: Male
  Weight: 16.5 kg

DRUGS (4)
  1. NAGLAZYME [Suspect]
     Indication: MUCOPOLYSACCHARIDOSIS VI
     Dosage: UNK
     Dates: start: 20100722
  2. NAGLAZYME [Suspect]
     Dosage: 15 MG, QW
     Route: 041
  3. NAGLAZYME [Suspect]
     Dosage: 20 MG, QW
     Route: 041
     Dates: start: 20130712
  4. POLARAMINE [Concomitant]
     Indication: PREMEDICATION
     Route: 048

REACTIONS (5)
  - Hypoaesthesia [Recovered/Resolved]
  - Hyperhidrosis [Recovered/Resolved]
  - Malaise [Recovered/Resolved]
  - Asthenia [Recovered/Resolved]
  - Pallor [Recovered/Resolved]
